FAERS Safety Report 6557574-4 (Version None)
Quarter: 2010Q1

REPORT INFORMATION
  Report Type: 
  Country: None (occurrence: None)
  Receive Date: 20100128
  Receipt Date: 20100128
  Transmission Date: 20100710
  Serious: Yes (Hospitalization)
  Sender: FDA-Public Use
  Company Number: None

PATIENT
  Sex: Female

DRUGS (5)
  1. HUMIRA [Suspect]
     Indication: PSORIASIS
     Dosage: 40 MG  X 2 SQ
     Route: 058
     Dates: start: 20100119
  2. TRIAMCINOLONE [Concomitant]
  3. VICODIN [Concomitant]
  4. ATARAX [Concomitant]
  5. GEODON [Concomitant]

REACTIONS (3)
  - DILATATION INTRAHEPATIC DUCT ACQUIRED [None]
  - DIVERTICULITIS [None]
  - HEPATIC STEATOSIS [None]
